FAERS Safety Report 24407498 (Version 1)
Quarter: 2024Q4

REPORT INFORMATION
  Report Type: Spontaneous
  Country: US (occurrence: US)
  Receive Date: 20241007
  Receipt Date: 20241007
  Transmission Date: 20250115
  Serious: Yes (Other)
  Sender: SANOFI AVENTIS
  Company Number: US-SA-2024SA286579

PATIENT
  Age: 56 Year
  Sex: Female
  Weight: 107.9 kg

DRUGS (2)
  1. DUPIXENT [Suspect]
     Active Substance: DUPILUMAB
     Indication: Asthma
     Dosage: 300 MG, QOW
     Route: 058
  2. FLUTICASONE [Concomitant]
     Active Substance: FLUTICASONE
     Dosage: 50 UG

REACTIONS (4)
  - Breast cancer female [Unknown]
  - Scar [Recovered/Resolved]
  - Liposuction [Recovered/Resolved]
  - Lymphovenous bypass [Recovered/Resolved]

NARRATIVE: CASE EVENT DATE: 20240903
